FAERS Safety Report 13799655 (Version 1)
Quarter: 2017Q3

REPORT INFORMATION
  Report Type: Spontaneous
  Country: US (occurrence: US)
  Receive Date: 20170727
  Receipt Date: 20170727
  Transmission Date: 20171127
  Serious: Yes (Hospitalization)
  Sender: FDA-Public Use
  Company Number: None

PATIENT
  Age: 48 Year
  Sex: Male
  Weight: 70.65 kg

DRUGS (1)
  1. CREST PRO-HEALTH CLINICAL [Suspect]
     Active Substance: CETYLPYRIDINIUM CHLORIDE
     Indication: DENTAL DISORDER PROPHYLAXIS
     Dosage: 4 TEASPOON(S); DAILY; ORAL?
     Route: 048
     Dates: start: 20170723, end: 20170726

REACTIONS (5)
  - Hypersensitivity [None]
  - Lip swelling [None]
  - Pain [None]
  - Parotitis [None]
  - Discomfort [None]

NARRATIVE: CASE EVENT DATE: 20170725
